FAERS Safety Report 11755228 (Version 2)
Quarter: 2015Q4

REPORT INFORMATION
  Report Type: Report from Study
  Country: US (occurrence: US)
  Receive Date: 20151119
  Receipt Date: 20151208
  Transmission Date: 20160304
  Serious: Yes (Death, Hospitalization)
  Sender: FDA-Public Use
  Company Number: US-EXELIXIS-CABO-15005706

PATIENT
  Age: 64 Year
  Sex: Female
  Weight: 59.42 kg

DRUGS (6)
  1. COMETRIQ [Suspect]
     Active Substance: CABOZANTINIB S-MALATE
     Indication: LUNG NEOPLASM MALIGNANT
     Dosage: 140 MG, QD
     Route: 048
     Dates: start: 20150819, end: 20151001
  2. DEXAMETHASONE. [Concomitant]
     Active Substance: DEXAMETHASONE
  3. MAGIC MOUTHWASH [Concomitant]
     Active Substance: DIPHENHYDRAMINE HYDROCHLORIDE\LIDOCAINE HYDROCHLORIDE\NYSTATIN
  4. COMETRIQ [Suspect]
     Active Substance: CABOZANTINIB S-MALATE
     Dosage: 100 MG, QD
     Route: 048
     Dates: start: 20151002, end: 20151106
  5. LORAZEPAM. [Concomitant]
     Active Substance: LORAZEPAM
  6. XOPENEX [Concomitant]
     Active Substance: LEVALBUTEROL HYDROCHLORIDE

REACTIONS (25)
  - Dry mouth [Unknown]
  - Constipation [Unknown]
  - Essential hypertension [Unknown]
  - Dehydration [Unknown]
  - Lung infiltration [Unknown]
  - Asthenia [Unknown]
  - Stomatitis [Unknown]
  - Sepsis [Unknown]
  - Metabolic encephalopathy [Unknown]
  - Malignant neoplasm progression [Fatal]
  - Hypophagia [Unknown]
  - Pneumonia [Unknown]
  - Metastases to central nervous system [Unknown]
  - Off label use [Unknown]
  - Acute respiratory failure [Unknown]
  - Malignant pleural effusion [Unknown]
  - Oral pain [Not Recovered/Not Resolved]
  - Hyponatraemia [Unknown]
  - Nausea [Unknown]
  - Cough [Unknown]
  - Malnutrition [Unknown]
  - Oral candidiasis [Unknown]
  - Diabetes mellitus inadequate control [Unknown]
  - Urinary tract infection [Unknown]
  - Lethargy [Unknown]

NARRATIVE: CASE EVENT DATE: 20150819
